FAERS Safety Report 14737898 (Version 1)
Quarter: 2018Q2

REPORT INFORMATION
  Report Type: Report from Study
  Country: IT (occurrence: IT)
  Receive Date: 20180409
  Receipt Date: 20180409
  Transmission Date: 20180711
  Serious: Yes (Death)
  Sender: FDA-Public Use
  Company Number: IT-ROCHE-2104601

PATIENT

DRUGS (2)
  1. CHLORAMBUCIL [Suspect]
     Active Substance: CHLORAMBUCIL
     Indication: WALDENSTROM^S MACROGLOBULINAEMIA
     Dosage: DAYS AT A FIXED DAILY DOSE OF 10 MG STARTING FROM DAY 1 AND REPEATED FOR 8 CYCLES
     Route: 048
  2. RITUXIMAB. [Suspect]
     Active Substance: RITUXIMAB
     Indication: WALDENSTROM^S MACROGLOBULINAEMIA
     Dosage: FOR 6 CYCLES
     Route: 042

REACTIONS (2)
  - Necrotising oesophagitis [Fatal]
  - Pancytopenia [Fatal]
